FAERS Safety Report 23859534 (Version 2)
Quarter: 2024Q2

REPORT INFORMATION
  Report Type: Spontaneous
  Country: ES (occurrence: ES)
  Receive Date: 20240515
  Receipt Date: 20240523
  Transmission Date: 20240716
  Serious: Yes (Other)
  Sender: FDA-Public Use
  Company Number: ES-WOODWARD-2024-ES-000039

PATIENT
  Age: 82 Year
  Sex: Male

DRUGS (1)
  1. DUTASTERIDE\TAMSULOSIN HYDROCHLORIDE [Suspect]
     Active Substance: DUTASTERIDE\TAMSULOSIN HYDROCHLORIDE
     Indication: Benign prostatic hyperplasia
     Dosage: UNK, 10-15 YEARS AGO

REACTIONS (5)
  - Gastrooesophageal cancer [Unknown]
  - Dysphagia [Unknown]
  - Dyspepsia [Unknown]
  - Discomfort [Unknown]
  - Product use complaint [Unknown]
